FAERS Safety Report 8429950-6 (Version None)
Quarter: 2012Q2

REPORT INFORMATION
  Report Type: 
  Country: None (occurrence: None)
  Receive Date: 20120323
  Receipt Date: 20111205
  Transmission Date: 20120825
  Serious: Yes (Other)
  Sender: FDA-Public Use
  Company Number: 163-1880-11120738

PATIENT
  Age: 66 Year
  Sex: Female

DRUGS (11)
  1. HYDRALAZINE HCL [Concomitant]
  2. WARFARIN SODIUM [Concomitant]
  3. REVLIMID [Suspect]
     Indication: MULTIPLE MYELOMA
     Dosage: 25 MG, X21D/28D, PO 5 MG, 1 IN 1 D, PO 10 MG, 1 IN 1 D, PO
     Route: 048
     Dates: start: 20110901
  4. REVLIMID [Suspect]
     Indication: MULTIPLE MYELOMA
     Dosage: 25 MG, X21D/28D, PO 5 MG, 1 IN 1 D, PO 10 MG, 1 IN 1 D, PO
     Route: 048
     Dates: start: 20100901, end: 20101101
  5. REVLIMID [Suspect]
     Indication: MULTIPLE MYELOMA
     Dosage: 25 MG, X21D/28D, PO 5 MG, 1 IN 1 D, PO 10 MG, 1 IN 1 D, PO
     Route: 048
     Dates: start: 20110601, end: 20110901
  6. CLONIDINE [Concomitant]
  7. MORPHINE [Concomitant]
  8. FUROSEMIDE [Concomitant]
  9. AMLODIPINE [Concomitant]
  10. NORTRIPTYLINE HCL [Concomitant]
  11. POTASSIUM CHLORIDE [Concomitant]

REACTIONS (1)
  - PROTEIN TOTAL INCREASED [None]
